FAERS Safety Report 9845707 (Version 1)
Quarter: 2014Q1

REPORT INFORMATION
  Report Type: Spontaneous
  Country: US (occurrence: US)
  Receive Date: 20140127
  Receipt Date: 20140127
  Transmission Date: 20141002
  Serious: No
  Sender: FDA-Public Use
  Company Number: US-PFIZER INC-2014020189

PATIENT
  Age: 58 Year
  Sex: Female
  Weight: 90.7 kg

DRUGS (6)
  1. ATORVASTATIN CALCIUM [Suspect]
     Indication: BLOOD CHOLESTEROL ABNORMAL
     Dosage: 10 MG, DAILY
     Dates: start: 2013, end: 2013
  2. REMICADE [Concomitant]
     Indication: RHEUMATOID ARTHRITIS
     Dosage: UNK
  3. METHOTREXATE [Concomitant]
     Indication: RHEUMATOID ARTHRITIS
     Dosage: 15 MG, WEEKLY
  4. FOLIC ACID [Concomitant]
     Indication: RHEUMATOID ARTHRITIS
     Dosage: 1 MG, 6X/WEEK
  5. METHYLPHENIDATE [Concomitant]
     Indication: NARCOLEPSY
     Dosage: 30 MG, DAILY OR TWO TIMES A DAY
  6. LYRICA [Concomitant]
     Indication: FIBROMYALGIA
     Dosage: 100 MG, 3X/DAY

REACTIONS (1)
  - Drug ineffective [Unknown]
